FAERS Safety Report 5928273-4 (Version None)
Quarter: 2008Q4

REPORT INFORMATION
  Report Type: 
  Country: None (occurrence: None)
  Receive Date: 20081022
  Receipt Date: 20081022
  Transmission Date: 20090506
  Serious: Yes (Death, Life-Threatening, Hospitalization)
  Sender: FDA-Public Use
  Company Number: None

PATIENT
  Age: 81 Year
  Sex: Female

DRUGS (10)
  1. WARFARIN SODIUM [Suspect]
     Indication: PULMONARY EMBOLISM
     Dosage: 5 MG DAILY PO
     Route: 048
     Dates: start: 20080315, end: 20080412
  2. ALBUTEROL [Concomitant]
  3. IPRATROPIUM NEBS [Concomitant]
  4. LEVOTHYROXINE SODIUM [Concomitant]
  5. ESOMEPRAZOLE MAGNESIUM [Concomitant]
  6. BISACODYL [Concomitant]
  7. DUCUSATE SODIUM [Concomitant]
  8. MEMANTINE HCL [Concomitant]
  9. LISINOPRIL [Concomitant]
  10. ASPIRIN [Concomitant]

REACTIONS (6)
  - CARDIOGENIC SHOCK [None]
  - COAGULOPATHY [None]
  - HAEMOPTYSIS [None]
  - HYPOXIA [None]
  - MALNUTRITION [None]
  - WEANING FAILURE [None]
